FAERS Safety Report 10722074 (Version 1)
Quarter: 2015Q1

REPORT INFORMATION
  Report Type: Spontaneous
  Country: US (occurrence: US)
  Receive Date: 20150119
  Receipt Date: 20150119
  Transmission Date: 20150721
  Serious: Yes (Other)
  Sender: FDA-Public Use
  Company Number: US-009507513-1501USA005098

PATIENT
  Age: 91 Year
  Sex: Female
  Weight: 97.51 kg

DRUGS (5)
  1. ELAVIL [Suspect]
     Active Substance: AMITRIPTYLINE HYDROCHLORIDE
     Indication: NERVOUSNESS
     Dosage: UNK UNK, QD
  2. NEURONTIN [Suspect]
     Active Substance: GABAPENTIN
     Indication: NERVOUSNESS
     Dosage: TWICE A DAY
     Dates: start: 1995
  3. LIPITOR [Suspect]
     Active Substance: ATORVASTATIN CALCIUM
     Dosage: UNK
  4. DETROL [Suspect]
     Active Substance: TOLTERODINE TARTRATE
     Dosage: UNK
  5. DETROL LA [Suspect]
     Active Substance: TOLTERODINE TARTRATE
     Indication: RENAL DISORDER
     Dosage: NIGHLY, 1 PILL

REACTIONS (5)
  - Macular degeneration [Not Recovered/Not Resolved]
  - Diplopia [Not Recovered/Not Resolved]
  - Amnesia [Not Recovered/Not Resolved]
  - Blindness [Not Recovered/Not Resolved]
  - Confusional state [Not Recovered/Not Resolved]

NARRATIVE: CASE EVENT DATE: 2013
